FAERS Safety Report 5450387-6 (Version None)
Quarter: 2007Q3

REPORT INFORMATION
  Report Type: 
  Country: None (occurrence: None)
  Receive Date: 20070803
  Receipt Date: 20070511
  Transmission Date: 20080115
  Serious: Yes (Other)
  Sender: FDA-Public Use
  Company Number: 37101

PATIENT
  Age: 51 Year
  Sex: Male
  Weight: 116.5744 kg

DRUGS (3)
  1. PROPOFOL [Suspect]
     Indication: SEDATIVE THERAPY
     Dosage: 200MG IVP, OVER 25 MINUTES
     Route: 042
     Dates: start: 20070509
  2. PROPOFOL [Suspect]
  3. MULTI-VITAMIN [Concomitant]

REACTIONS (3)
  - CHILLS [None]
  - INFLUENZA LIKE ILLNESS [None]
  - MYALGIA [None]
